FAERS Safety Report 18009057 (Version 2)
Quarter: 2021Q3

REPORT INFORMATION
  Report Type: Spontaneous
  Country: US (occurrence: US)
  Receive Date: 20200710
  Receipt Date: 20210806
  Transmission Date: 20211014
  Serious: Yes (Hospitalization, Other)
  Sender: FDA-Public Use
  Company Number: US-SAOL THERAPEUTICS-2020SAO00041

PATIENT
  Age: 50 Year
  Sex: Female
  Weight: 56.24 kg

DRUGS (42)
  1. LIORESAL [Suspect]
     Active Substance: BACLOFEN
     Dosage: 254.87 ?G, \DAY
     Route: 037
     Dates: start: 20200123
  2. ZYRTEC [Concomitant]
     Active Substance: CETIRIZINE HYDROCHLORIDE
     Dosage: 20 MG, 1X/DAY EVERY MORNING AS NEEDED
     Route: 048
  3. TOPIRAMATE. [Concomitant]
     Active Substance: TOPIRAMATE
     Dosage: 50 MG, 1X/DAY FOR 2 WEEKS AT BEDTIME
     Route: 048
  4. TEMAZEPAM. [Concomitant]
     Active Substance: TEMAZEPAM
     Dosage: 15 MG, 1X/DAY AT BEDTIME AS NEEDED
  5. MELATONIN [Concomitant]
     Active Substance: MELATONIN
     Dosage: 1 MG, 1X/DAY
     Route: 048
  6. XYLOCAINE 5% [Concomitant]
     Dosage: 1 DOSAGE UNITS, AS DIRECTED
     Route: 061
  7. BAYER CHILDREN ASPIRIN [Concomitant]
     Dosage: 81 MG, 1X/DAY
     Route: 048
  8. TOPIRAMATE. [Concomitant]
     Active Substance: TOPIRAMATE
     Dosage: 150 MG, 1X/DAY AT BEDTIME AS TOLERATED
     Route: 048
  9. LIORESAL [Suspect]
     Active Substance: BACLOFEN
     Indication: MUSCLE SPASTICITY
     Dosage: UNK ?G, \DAY
     Route: 037
     Dates: start: 20110819
  10. MIN?CHEX [Concomitant]
     Dosage: 1 CAPSULES, 3X/DAY
     Route: 048
  11. PEPCID COMPLETE [Concomitant]
     Active Substance: CALCIUM CARBONATE\FAMOTIDINE\MAGNESIUM HYDROXIDE
     Dosage: CHEW 1 ? 2 TABLETS, AS NEEDED
     Route: 048
  12. LIORESAL [Suspect]
     Active Substance: BACLOFEN
     Dosage: 247.14 ?G, \DAY
     Route: 037
     Dates: start: 20190904, end: 20200123
  13. NEURONTIN [Concomitant]
     Active Substance: GABAPENTIN
     Dosage: 1200 MG (3 CAPSULES), 1X/DAY AT 9PM
     Route: 048
  14. ZOFRAN ODT [Concomitant]
     Active Substance: ONDANSETRON HYDROCHLORIDE
     Dosage: 4 MG, 3X/DAY (EVERY 8 HOURS AS NEEDED)
     Route: 048
  15. DEXILANT [Concomitant]
     Active Substance: DEXLANSOPRAZOLE
     Dosage: UNK, 1X/DAY
  16. TOPAMAX [Concomitant]
     Active Substance: TOPIRAMATE
     Dosage: (150 MG, 1X/DAY AT NOON; PER PATIENT: CURRENTLY TAKING 3 TABLETS 2X/DAY)
     Route: 048
  17. EMERGENCY?C/VITAMIN C ASCORBIC ACID [Concomitant]
     Dosage: 1000 MG, 1X/DAY
  18. NEURONTIN [Concomitant]
     Active Substance: GABAPENTIN
     Indication: NEURALGIA
     Dosage: 800 MG, 3X/DAY (TWO 400 MG CAPSULES 3X/DAY AT 8 AM, 1PM, 5PM; ALSO REPORTED AS 6AM/1PM/6PM )
  19. NEURONTIN [Concomitant]
     Active Substance: GABAPENTIN
     Dosage: 800 MG, 4X/DAY (800 MG EVERY 6 HOURS AT 6AM, 12 PM, 6PM, 12 MIDNIGHT)
     Dates: start: 20200904
  20. GABAPENTIN. [Concomitant]
     Active Substance: GABAPENTIN
     Dosage: 1200 MG, 1X/DAY (AS 4 CAPSULES AT BEDTIME)
     Route: 048
  21. TOPIRAMATE. [Concomitant]
     Active Substance: TOPIRAMATE
     Dosage: 100 MG, 1X/DAY FOR 2 WEEKS AT BEDTIME
     Route: 048
  22. TIZANIDINE. [Concomitant]
     Active Substance: TIZANIDINE
     Dosage: 2 MG, UP TO 4X/DAY (EVERY 6 HOURS) AS NEEDED
     Route: 048
  23. IMITREX [Concomitant]
     Active Substance: SUMATRIPTAN SUCCINATE
     Dosage: 100 MG, 1X/DAY AS NEEDED
     Route: 048
  24. DRISDOL [Concomitant]
     Active Substance: ERGOCALCIFEROL
     Dosage: 50000 IU, 1X/WEEK ON SUNDAYS
     Route: 048
  25. VITAMIN B?12/CYANOCOBALAMIN [Concomitant]
     Dosage: 1000 ?G, 1X/DAY AT BEDTIME
     Route: 048
  26. LIORESAL [Suspect]
     Active Substance: BACLOFEN
     Dosage: 262.38 ?G, \DAY (AS OF 14?OCT?2020)
     Route: 037
  27. GABAPENTIN. [Concomitant]
     Active Substance: GABAPENTIN
     Indication: NEURALGIA
     Dosage: 900 MG, 3X/DAY (300 MG CAPSULE AT 3 CAPSULES, ORALLY, 3X/DAY AT 8 AM,1 PM, 5 PM)
     Route: 048
  28. SINGULAIR [Concomitant]
     Active Substance: MONTELUKAST SODIUM
     Dosage: 10 MG, 1X/DAY
     Route: 048
  29. AMITRIPTYLINE [Concomitant]
     Active Substance: AMITRIPTYLINE
     Dosage: 20 MG, 1X/DAY
     Route: 048
  30. ACETAMINIOPHEN [Concomitant]
     Dosage: 650 MG, 4X/DAY (EVERY 6 HOURS AS NEEDED)
     Route: 048
  31. EFFEXOR XR [Concomitant]
     Active Substance: VENLAFAXINE HYDROCHLORIDE
     Dosage: 75 MG, 3X/DAY; TAKES 2 CAPSULES IN A.M. AND 1 CAPSULE AT NOON
  32. ACIDOPHILUS/L. SALIV/BB/S. THERMOP ACIDOPHILUS [Concomitant]
     Dosage: 175 MG, 2X/DAY BEFORE MEALS
     Route: 048
  33. PAPAYA ENZTME [Concomitant]
     Dosage: 3 TABLETS, 1X/DAY
     Route: 048
  34. VENLAFAXINE [Concomitant]
     Active Substance: VENLAFAXINE HYDROCHLORIDE
     Dosage: 75 MG, 3X/DAY
     Route: 048
  35. TOPIRAMATE. [Concomitant]
     Active Substance: TOPIRAMATE
     Dosage: UNK
  36. DOCUSATE SODIUM. [Concomitant]
     Active Substance: DOCUSATE SODIUM
     Dosage: 100 MG, AS NEEDED (9 A.M. AND 5 P.M.)
     Route: 048
  37. ALPRAZOLAM. [Concomitant]
     Active Substance: ALPRAZOLAM
     Dosage: 0.25 MG, 3X/DAY AS NEEDED
     Route: 048
  38. PRAVACHOL [Concomitant]
     Active Substance: PRAVASTATIN SODIUM
     Dosage: 40 MG, 1X/DAY AT BEDTIME
     Route: 048
  39. METAMUCIL PACKET [Concomitant]
     Dosage: 1 DOSAGE UNITS, 1X/DAY
     Route: 048
  40. LIORESAL [Suspect]
     Active Substance: BACLOFEN
     Dosage: 235.26 ?G, \DAY
     Route: 037
     Dates: end: 20190904
  41. NEURONTIN [Concomitant]
     Active Substance: GABAPENTIN
     Dosage: 400 MG, 1X/DAY (1 CAPSULE AT BEDTIME)
     Dates: end: 20200904
  42. VALTREX [Concomitant]
     Active Substance: VALACYCLOVIR HYDROCHLORIDE
     Dosage: 500 MG, 1X/DAY
     Route: 048

REACTIONS (11)
  - Loss of consciousness [Recovered/Resolved]
  - Complication associated with device [Unknown]
  - Urinary tract infection bacterial [Recovering/Resolving]
  - Therapeutic response decreased [Not Recovered/Not Resolved]
  - Gait disturbance [Unknown]
  - Device infusion issue [Unknown]
  - Muscular weakness [Unknown]
  - Overdose [Recovered/Resolved]
  - Dizziness [Unknown]
  - Somnolence [Recovering/Resolving]
  - Device dislocation [Unknown]

NARRATIVE: CASE EVENT DATE: 20190110
